FAERS Safety Report 5626334-0 (Version None)
Quarter: 2008Q1

REPORT INFORMATION
  Report Type: 
  Country: None (occurrence: None)
  Receive Date: 20080213
  Receipt Date: 20080213
  Transmission Date: 20080703
  Serious: Yes (Hospitalization)
  Sender: FDA-Public Use
  Company Number: None

PATIENT
  Age: 81 Year
  Sex: Male
  Weight: 73.0291 kg

DRUGS (1)
  1. INVANZ [Suspect]
     Indication: ESCHERICHIA SEPSIS
     Dosage: 1GM Q24H IV
     Route: 042
     Dates: start: 20071231, end: 20080126

REACTIONS (5)
  - ABASIA [None]
  - ASTHENIA [None]
  - BLOOD CREATININE INCREASED [None]
  - LETHARGY [None]
  - PYREXIA [None]
